FAERS Safety Report 6369950-3 (Version None)
Quarter: 2009Q3

REPORT INFORMATION
  Report Type: 
  Country: None (occurrence: None)
  Receive Date: 20090923
  Receipt Date: 20071121
  Transmission Date: 20100115
  Serious: Yes (Other)
  Sender: FDA-Public Use
  Company Number: US-ASTRAZENECA-2006UW06096

PATIENT
  Age: 45 Year
  Sex: Male
  Weight: 117.9 kg

DRUGS (20)
  1. SEROQUEL [Suspect]
     Indication: BIPOLAR DISORDER
     Route: 048
     Dates: start: 20021205, end: 20050804
  2. SEROQUEL [Suspect]
     Indication: SLEEP DISORDER
     Route: 048
     Dates: start: 20021205, end: 20050804
  3. SEROQUEL [Suspect]
     Dosage: 25 -100 MG
     Route: 048
     Dates: start: 20021125
  4. SEROQUEL [Suspect]
     Dosage: 25 -100 MG
     Route: 048
     Dates: start: 20021125
  5. DEPAKOTE [Concomitant]
     Route: 048
  6. GLUCOVANCE [Concomitant]
     Indication: DIABETES MELLITUS
     Dosage: TWO TIMES A DAY
     Route: 048
     Dates: start: 20040120
  7. DIOVAN [Concomitant]
     Route: 048
     Dates: start: 20040120
  8. PROTONIX [Concomitant]
     Route: 048
     Dates: start: 20021127
  9. DARVOCET-N 100 [Concomitant]
     Indication: PAIN
     Route: 048
     Dates: start: 20040205
  10. NAPROXEN [Concomitant]
     Route: 048
     Dates: start: 20040205
  11. ACETAMINOPHEN [Concomitant]
     Route: 048
     Dates: start: 20040205
  12. TEMAZEPAM [Concomitant]
     Dosage: 7.5 TO 15 MG, EVERY NIGHT AT BEDTIME
     Route: 048
     Dates: start: 20040121
  13. GLUCOPHAGE [Concomitant]
     Dosage: 500 TO 1000 MG, EVERY NIGHT AT BEDTIME
     Route: 048
     Dates: start: 20040121
  14. GLYBURIDE [Concomitant]
     Route: 048
     Dates: start: 20040121
  15. AMBIEN [Concomitant]
     Route: 048
     Dates: start: 20040121
  16. CYCLOBENZAPRINE HCL [Concomitant]
     Route: 048
     Dates: start: 20040121
  17. ASPIRIN [Concomitant]
     Route: 048
     Dates: start: 20060913
  18. LIPITOR [Concomitant]
     Route: 048
     Dates: start: 20050915
  19. TRICOR [Concomitant]
     Route: 048
     Dates: start: 20040203
  20. LOPRESSOR [Concomitant]
     Route: 048
     Dates: start: 20060913

REACTIONS (3)
  - DIABETES MELLITUS [None]
  - DIABETES MELLITUS INADEQUATE CONTROL [None]
  - TARDIVE DYSKINESIA [None]
